FAERS Safety Report 13224424 (Version 2)
Quarter: 2017Q1

REPORT INFORMATION
  Report Type: Report from Study
  Country: FR (occurrence: FR)
  Receive Date: 20170212
  Receipt Date: 20170315
  Transmission Date: 20170428
  Serious: Yes (Other)
  Sender: FDA-Public Use
  Company Number: PHHY2016FR002793

PATIENT
  Age: 63 Year
  Sex: Female

DRUGS (1)
  1. TASIGNA [Suspect]
     Active Substance: NILOTINIB
     Indication: CHRONIC MYELOID LEUKAEMIA
     Dosage: 300 MG, QD (2 DF DAILY)
     Route: 048
     Dates: start: 20110309, end: 20161116

REACTIONS (5)
  - Ear infection fungal [Recovered/Resolved]
  - Carotid artery stenosis [Not Recovered/Not Resolved]
  - Vertigo [Recovered/Resolved]
  - Aortic dilatation [Not Recovered/Not Resolved]
  - Fungal infection [Unknown]

NARRATIVE: CASE EVENT DATE: 20151030
